FAERS Safety Report 18694949 (Version 6)
Quarter: 2021Q3

REPORT INFORMATION
  Report Type: Other
  Country: PT (occurrence: PT)
  Receive Date: 20210104
  Receipt Date: 20210803
  Transmission Date: 20211014
  Serious: Yes (Hospitalization, Disabling, Other)
  Sender: FDA-Public Use
  Company Number: PT-ROCHE-2741281

PATIENT
  Sex: Male

DRUGS (9)
  1. MORPHINE [Concomitant]
     Active Substance: MORPHINE
     Dosage: 20 MG 2 DROPS IN SOS EVERY 6 HOURS
  2. EUTIROX [Concomitant]
     Active Substance: LEVOTHYROXINE SODIUM
     Dosage: 50 MG 1 TABLET FASTING
  3. CODIPRONT (PORTUGAL) [Concomitant]
     Dosage: 30 MG 1 TABLET AT NIGHT
  4. SPIOLTO RESPIMAT [Concomitant]
     Active Substance: OLODATEROL HYDROCHLORIDE\TIOTROPIUM BROMIDE MONOHYDRATE
     Dosage: SOLUTION FOR INHALATION) IN THE MORNING
  5. LIVAZO [Concomitant]
     Active Substance: PITAVASTATIN CALCIUM
  6. ESBRIET [Suspect]
     Active Substance: PIRFENIDONE
     Indication: IDIOPATHIC PULMONARY FIBROSIS
     Dosage: 2 TABLETS 3 TIMES A DAY
     Route: 048
     Dates: start: 20191001
  7. PANTOPRAZOL [Concomitant]
     Active Substance: PANTOPRAZOLE SODIUM
     Dosage: 1 TABLET IN FASTING
  8. ESOMEPRAZOLE. [Concomitant]
     Active Substance: ESOMEPRAZOLE MAGNESIUM
     Dosage: 40MG 2 TABLETS A DAY
  9. FLIXOTIDE [Concomitant]
     Active Substance: FLUTICASONE PROPIONATE
     Dosage: IN THE MORNING AND BEFORE DINNER

REACTIONS (13)
  - Hypertension [Unknown]
  - Dyspnoea [Not Recovered/Not Resolved]
  - Abdominal pain upper [Recovered/Resolved]
  - Abdominal pain upper [Recovering/Resolving]
  - Asthenia [Not Recovered/Not Resolved]
  - Oxygen saturation decreased [Not Recovered/Not Resolved]
  - Fatigue [Recovered/Resolved]
  - Blood sodium decreased [Recovered/Resolved]
  - Cough [Not Recovered/Not Resolved]
  - Blood chloride decreased [Recovered/Resolved]
  - Tremor [Recovered/Resolved]
  - Dyspnoea [Recovered/Resolved]
  - Cardiac disorder [Unknown]

NARRATIVE: CASE EVENT DATE: 20210305
